FAERS Safety Report 11157573 (Version 2)
Quarter: 2015Q3

REPORT INFORMATION
  Report Type: Spontaneous
  Country: JP (occurrence: None)
  Receive Date: 20150601
  Receipt Date: 20150728
  Transmission Date: 20151125
  Serious: Yes (Hospitalization)
  Sender: FDA-Public Use
  Company Number: 2015FE00195

PATIENT
  Age: 84 Year
  Sex: Male
  Weight: 68 kg

DRUGS (4)
  1. NICORANDIL (NICORANDIL) [Concomitant]
     Active Substance: NICORANDIL
  2. UNISIA (AMLODIPINE BESILATE, CANDESARTAN CILEXETIL) [Concomitant]
  3. DECADRON [Concomitant]
     Active Substance: DEXAMETHASONE
  4. GONAX (DEGARELIX) POWDER AND SOLVENT FOR SOLUTION FOR INJECTION [Suspect]
     Active Substance: DEGARELIX
     Indication: PROSTATE CANCER
     Route: 058
     Dates: start: 20130708, end: 20150218

REACTIONS (3)
  - Injection site swelling [None]
  - Cellulitis [None]
  - Injection site cellulitis [None]

NARRATIVE: CASE EVENT DATE: 20150120
